FAERS Safety Report 9070938 (Version 1)
Quarter: 2013Q1

REPORT INFORMATION
  Report Type: Report from Study
  Country: JP (occurrence: JP)
  Receive Date: 20130129
  Receipt Date: 20130129
  Transmission Date: 20140127
  Serious: Yes (Other)
  Sender: FDA-Public Use
  Company Number: JP-GLAXOSMITHKLINE-B0671917A

PATIENT
  Age: 64 None
  Sex: Male
  Weight: 58 kg

DRUGS (22)
  1. ARRANON [Suspect]
     Indication: PRECURSOR T-LYMPHOBLASTIC LYMPHOMA/LEUKAEMIA
     Dosage: 1500MGM2 PER DAY
     Route: 042
     Dates: start: 20100720, end: 20100724
  2. PREDONINE [Concomitant]
     Indication: NEOPLASM MALIGNANT
     Dates: start: 20100602, end: 20100717
  3. PREDONINE [Concomitant]
     Indication: NEOPLASM MALIGNANT
     Dates: start: 20100802, end: 20100815
  4. DOXORUBICIN HYDROCHLORIDE [Concomitant]
     Indication: NEOPLASM MALIGNANT
     Dates: start: 20100603, end: 20100603
  5. DOXORUBICIN HYDROCHLORIDE [Concomitant]
     Indication: NEOPLASM MALIGNANT
     Dates: start: 20100607, end: 20100607
  6. DOXORUBICIN HYDROCHLORIDE [Concomitant]
     Indication: NEOPLASM MALIGNANT
     Dates: start: 20100609, end: 20100609
  7. VINCRISTINE SULFATE [Concomitant]
     Indication: NEOPLASM MALIGNANT
     Route: 042
     Dates: start: 20100603, end: 20100603
  8. VINCRISTINE SULFATE [Concomitant]
     Indication: NEOPLASM MALIGNANT
     Route: 042
     Dates: start: 20100609, end: 20100609
  9. VINCRISTINE SULFATE [Concomitant]
     Indication: NEOPLASM MALIGNANT
     Route: 042
     Dates: start: 20100618, end: 20100618
  10. VINCRISTINE SULFATE [Concomitant]
     Indication: NEOPLASM MALIGNANT
     Route: 042
     Dates: start: 20100625, end: 20100625
  11. CYCLOPHOSPHAMIDE [Concomitant]
     Indication: NEOPLASM MALIGNANT
     Route: 042
     Dates: start: 20100603, end: 20100603
  12. CYCLOPHOSPHAMIDE [Concomitant]
     Indication: NEOPLASM MALIGNANT
     Route: 042
     Dates: start: 20100625, end: 20100625
  13. CYCLOPHOSPHAMIDE [Concomitant]
     Indication: NEOPLASM MALIGNANT
     Route: 042
     Dates: start: 20100730
  14. MITOXANTRONE HYDROCHLORIDE [Concomitant]
     Indication: NEOPLASM MALIGNANT
     Route: 042
     Dates: start: 20100625, end: 20100626
  15. MITOXANTRONE HYDROCHLORIDE [Concomitant]
     Indication: NEOPLASM MALIGNANT
     Route: 042
     Dates: start: 20100730, end: 20100731
  16. SOLU-CORTEF [Concomitant]
     Indication: NEOPLASM MALIGNANT
     Dates: start: 20100729, end: 20100801
  17. POLYMYXIN-B SULFATE [Concomitant]
     Indication: INFECTION PROPHYLAXIS
     Route: 048
     Dates: start: 20100601, end: 20100815
  18. MUCOSTA [Concomitant]
     Indication: GASTRITIS PROPHYLAXIS
     Route: 048
     Dates: start: 20100601, end: 20100815
  19. DIFLUCAN [Concomitant]
     Indication: INFECTION PROPHYLAXIS
     Route: 048
     Dates: start: 20100601, end: 20100815
  20. SULPERAZON [Concomitant]
     Route: 042
     Dates: start: 20100728, end: 20100731
  21. OMEGACIN [Concomitant]
     Route: 042
     Dates: start: 20100811, end: 20100815
  22. FULCALIQ [Concomitant]
     Route: 042
     Dates: start: 20100812, end: 20100815

REACTIONS (4)
  - Gastrointestinal haemorrhage [Not Recovered/Not Resolved]
  - Pneumonia [Not Recovered/Not Resolved]
  - Pyrexia [Recovered/Resolved]
  - Thrombocytopenia [Not Recovered/Not Resolved]
